FAERS Safety Report 6573599-7 (Version None)
Quarter: 2010Q1

REPORT INFORMATION
  Report Type: 
  Country: None (occurrence: None)
  Receive Date: 20100204
  Receipt Date: 20100204
  Transmission Date: 20100710
  Serious: Yes (Life-Threatening, Hospitalization)
  Sender: FDA-Public Use
  Company Number: None

PATIENT
  Age: 75 Year
  Sex: Female
  Weight: 72.5755 kg

DRUGS (3)
  1. SIMVASTATIN [Suspect]
     Indication: BLOOD CHOLESTEROL ABNORMAL
     Dates: start: 20091210, end: 20100125
  2. SIMVASTATIN [Suspect]
     Indication: BLOOD TRIGLYCERIDES ABNORMAL
     Dates: start: 20091210, end: 20100125
  3. METROPOL TARTATE [Concomitant]

REACTIONS (2)
  - GASTRIC DISORDER [None]
  - RHABDOMYOLYSIS [None]
